FAERS Safety Report 6384579-9 (Version None)
Quarter: 2009Q4

REPORT INFORMATION
  Report Type: 
  Country: None (occurrence: None)
  Receive Date: 20091001
  Receipt Date: 20090923
  Transmission Date: 20100525
  Serious: Yes (Life-Threatening)
  Sender: FDA-Public Use
  Company Number: RU-ABBOTT-09P-251-0598914-00

PATIENT
  Age: 5 Year
  Sex: Male

DRUGS (3)
  1. DEPAKENE [Suspect]
     Indication: POISONING
     Route: 048
     Dates: start: 20090401, end: 20090401
  2. DIPYRONE INJ [Suspect]
     Indication: POISONING
     Route: 048
     Dates: start: 20090401, end: 20090401
  3. FINLEPSIN [Suspect]
     Indication: POISONING
     Route: 048
     Dates: start: 20090401, end: 20090401

REACTIONS (2)
  - ILL-DEFINED DISORDER [None]
  - POISONING DELIBERATE [None]
